FAERS Safety Report 10073238 (Version 1)
Quarter: 2014Q2

REPORT INFORMATION
  Report Type: Spontaneous
  Country: US (occurrence: US)
  Receive Date: 20140411
  Receipt Date: 20140411
  Transmission Date: 20141212
  Serious: Yes (Hospitalization)
  Sender: FDA-Public Use
  Company Number: US-GLAXOSMITHKLINE-A1068462A

PATIENT
  Age: 60 Year
  Sex: Female

DRUGS (4)
  1. ADVAIR [Suspect]
     Indication: CHRONIC OBSTRUCTIVE PULMONARY DISEASE
     Dosage: 1PUFF TWICE PER DAY
     Route: 055
     Dates: start: 2012
  2. PROZAC [Concomitant]
  3. ATIVAN [Concomitant]
  4. UNKNOWN [Concomitant]

REACTIONS (2)
  - Bipolar disorder [Recovered/Resolved]
  - Memory impairment [Recovered/Resolved]
